FAERS Safety Report 6497033-0 (Version None)
Quarter: 2009Q4

REPORT INFORMATION
  Report Type: 
  Country: None (occurrence: None)
  Receive Date: 20091215
  Receipt Date: 20090121
  Transmission Date: 20100525
  Serious: No
  Sender: FDA-Public Use
  Company Number: A0764528A

PATIENT
  Age: 63 Year
  Sex: Male

DRUGS (7)
  1. AVODART [Suspect]
     Indication: BENIGN PROSTATIC HYPERPLASIA
     Dosage: 1CAP PER DAY
     Route: 048
  2. SAW PALMETTO [Concomitant]
  3. LYCOPENE [Concomitant]
  4. LOTENSIN [Concomitant]
  5. SYNTHROID [Concomitant]
  6. ECHINACEA [Concomitant]
  7. UNKNOWN MEDICATION [Concomitant]

REACTIONS (1)
  - AMNESIA [None]
